FAERS Safety Report 9692278 (Version 1)
Quarter: 2013Q4

REPORT INFORMATION
  Report Type: Spontaneous
  Country: DE (occurrence: DE)
  Receive Date: 20131118
  Receipt Date: 20131118
  Transmission Date: 20140711
  Serious: Yes (Hospitalization)
  Sender: FDA-Public Use
  Company Number: DE-AMGEN-DEUSP2013080623

PATIENT
  Age: 65 Year
  Sex: Female
  Weight: 86 kg

DRUGS (4)
  1. NEULASTA [Suspect]
     Indication: PROPHYLAXIS
     Dosage: 6 MG, 6X
     Route: 058
     Dates: start: 20130423, end: 20130814
  2. DOCETAXEL [Suspect]
     Indication: BREAST CANCER RECURRENT
     Dosage: 70 MG/M2, 6X
     Route: 042
     Dates: start: 20130422, end: 20130813
  3. CARBOPLATIN [Suspect]
     Indication: BREAST CANCER RECURRENT
     Dosage: AUC 6 6X
     Route: 042
     Dates: start: 20130422, end: 20130813
  4. HERCEPTIN [Suspect]
     Indication: BREAST CANCER RECURRENT
     Dosage: 8 MG/KG, UNK
     Route: 042
     Dates: start: 20130422

REACTIONS (5)
  - Decreased appetite [Recovered/Resolved]
  - Asthenia [Unknown]
  - Pain [Unknown]
  - Haematochezia [Recovered/Resolved]
  - Hypoaesthesia [Unknown]
